FAERS Safety Report 5233981-7 (Version None)
Quarter: 2007Q1

REPORT INFORMATION
  Report Type: 
  Country: None (occurrence: None)
  Receive Date: 20070208
  Receipt Date: 20070130
  Transmission Date: 20070707
  Serious: Yes (Death, Hospitalization)
  Sender: FDA-Public Use
  Company Number: BR-PFIZER INC-2006152596

PATIENT
  Sex: Male

DRUGS (6)
  1. NEURONTIN [Suspect]
     Indication: NEURALGIA
     Route: 048
     Dates: start: 20060101, end: 20061025
  2. ALL OTHER THERAPEUTIC PRODUCTS [Concomitant]
     Route: 065
  3. SUSTRATE [Concomitant]
     Route: 048
  4. HUMULIN N [Concomitant]
     Route: 058
  5. HUMULIN R [Concomitant]
     Route: 058
  6. IRON POLYMALTOSE [Concomitant]
     Route: 048

REACTIONS (8)
  - CARDIAC FAILURE [None]
  - DIABETES MELLITUS [None]
  - INFARCTION [None]
  - LOCALISED INFECTION [None]
  - PERIPHERAL ISCHAEMIA [None]
  - PNEUMONIA [None]
  - SEPTIC SHOCK [None]
  - SURGERY [None]
